FAERS Safety Report 8640163 (Version 2)
Quarter: 2013Q2

REPORT INFORMATION
  Report Type: Report from Study
  Country: US (occurrence: US)
  Receive Date: 20120628
  Receipt Date: 20130627
  Transmission Date: 20140414
  Serious: Yes (Other)
  Sender: FDA-Public Use
  Company Number: US-MYLANLABS-2011S1026031

PATIENT
  Age: 43 Year
  Sex: Female
  Weight: 91.63 kg

DRUGS (5)
  1. CLOZAPINE TABLETS [Suspect]
     Indication: SCHIZOPHRENIA
     Route: 048
     Dates: end: 201202
  2. CLOZAPINE TABLETS [Suspect]
     Indication: SCHIZOPHRENIA
     Route: 048
     Dates: end: 201202
  3. HALDOL [Concomitant]
     Dosage: 10MG QAM AND 15MG HS
     Route: 048
     Dates: start: 201111
  4. TOPAMAX [Concomitant]
     Route: 048
  5. DEPAKOTE ER [Concomitant]
     Route: 048

REACTIONS (2)
  - Granulocytopenia [Recovered/Resolved]
  - Leukopenia [Recovered/Resolved]
